FAERS Safety Report 8538183-4 (Version None)
Quarter: 2012Q3

REPORT INFORMATION
  Report Type: 
  Country: None (occurrence: None)
  Receive Date: 20120726
  Receipt Date: 20120720
  Transmission Date: 20120928
  Serious: Yes (Hospitalization)
  Sender: FDA-Public Use
  Company Number: KR-009507513-1206USA04055

PATIENT

DRUGS (18)
  1. BLINDED APREPITANT [Suspect]
     Indication: PROPHYLAXIS OF NAUSEA AND VOMITING
     Dosage: UNK UNK, ONCE
     Route: 048
     Dates: start: 20120514, end: 20120514
  2. BLINDED APREPITANT [Suspect]
     Dosage: UNK UNK, QD
     Route: 048
     Dates: start: 20120515, end: 20120516
  3. BLINDED APREPITANT [Suspect]
     Dosage: UNK UNK, QD
     Route: 048
     Dates: start: 20120515, end: 20120516
  4. BLINDED PRE TRIAL THERAPY [Suspect]
     Dosage: UNK UNK, QD
     Route: 048
     Dates: start: 20120515, end: 20120516
  5. DEXAMETHASONE [Suspect]
     Indication: PROPHYLAXIS OF NAUSEA AND VOMITING
     Dosage: 0.3 ML, QD
     Route: 042
     Dates: start: 20120514, end: 20120517
  6. ONDANSETRON HYDROCHLORIDE [Suspect]
     Indication: PROPHYLAXIS OF NAUSEA AND VOMITING
     Dosage: UNK UNK, ONCE
     Route: 048
     Dates: start: 20120514, end: 20120514
  7. CISPLATIN [Concomitant]
     Indication: CHEMOTHERAPY
     Dosage: 32.5 MG, QD
     Route: 042
     Dates: start: 20120515, end: 20120517
  8. BLINDED ONDANSETRON HCL [Suspect]
     Dosage: UNK UNK, QD
     Route: 048
     Dates: start: 20120515, end: 20120516
  9. DEXAMETHASONE [Suspect]
     Indication: PROPHYLAXIS OF NAUSEA AND VOMITING
     Dosage: UNK UNK, ONCE
     Route: 048
     Dates: start: 20120514, end: 20120514
  10. BLINDED POST TRIAL THERAPY [Suspect]
     Dosage: UNK UNK, QD
     Route: 048
     Dates: start: 20120515, end: 20120516
  11. PLACEBO [Suspect]
     Indication: PROPHYLAXIS OF NAUSEA AND VOMITING
     Dosage: UNK UNK, ONCE
     Route: 048
     Dates: start: 20120514, end: 20120514
  12. DEXAMETHASONE [Suspect]
     Dosage: UNK UNK, QD
     Route: 048
     Dates: start: 20120515, end: 20120516
  13. ONDANSETRON [Suspect]
     Indication: PROPHYLAXIS OF NAUSEA AND VOMITING
     Dosage: 4 MG, QD
     Route: 048
     Dates: start: 20120514, end: 20120518
  14. PLACEBO [Suspect]
     Dosage: UNK UNK, QD
     Route: 048
     Dates: start: 20120515, end: 20120516
  15. BLINDED APREPITANT [Suspect]
     Dosage: UNK UNK, ONCE
     Route: 048
     Dates: start: 20120514, end: 20120514
  16. BLINDED POST TRIAL THERAPY [Suspect]
     Indication: PROPHYLAXIS OF NAUSEA AND VOMITING
     Dosage: UNK UNK, ONCE
     Route: 048
     Dates: start: 20120514, end: 20120514
  17. BLINDED PRE TRIAL THERAPY [Suspect]
     Indication: PROPHYLAXIS OF NAUSEA AND VOMITING
     Dosage: UNK UNK, ONCE
     Route: 048
     Dates: start: 20120514, end: 20120514
  18. ETOPOSIDE [Suspect]
     Indication: CHEMOTHERAPY
     Dosage: 130 MG, QD
     Route: 042
     Dates: start: 20120514, end: 20120516

REACTIONS (1)
  - VOMITING [None]
